FAERS Safety Report 5123467-2 (Version None)
Quarter: 2006Q4

REPORT INFORMATION
  Report Type: 
  Country: None (occurrence: None)
  Receive Date: 20061009
  Receipt Date: 20060926
  Transmission Date: 20070319
  Serious: Yes (Other)
  Sender: FDA-Public Use
  Company Number: DE-BOEHRINGER INGELHEIM PHARMACEUTICALS, INC.-2006-BP-11676YA

PATIENT
  Sex: Male

DRUGS (4)
  1. OMNIC OCAS ORODISPERSABLE CR [Suspect]
     Indication: BENIGN PROSTATIC HYPERPLASIA
     Route: 048
  2. OMNIC OCAS ORODISPERSABLE CR [Suspect]
     Indication: URINARY TRACT DISORDER
  3. ATACAND [Concomitant]
  4. REWODINA [Concomitant]

REACTIONS (4)
  - DIARRHOEA [None]
  - DIZZINESS [None]
  - GASTROINTESTINAL PAIN [None]
  - HAEMATOCHEZIA [None]
